FAERS Safety Report 22348589 (Version 2)
Quarter: 2023Q2

REPORT INFORMATION
  Report Type: Other
  Country: PL (occurrence: PL)
  Receive Date: 20230522
  Receipt Date: 20230626
  Transmission Date: 20230722
  Serious: Yes (Death, Other)
  Sender: FDA-Public Use
  Company Number: PL-CELLTRION INC.-2023PL010342

PATIENT

DRUGS (3)
  1. RITUXIMAB [Suspect]
     Active Substance: RITUXIMAB
     Indication: Mantle cell lymphoma
     Dosage: UNK
     Route: 065
     Dates: start: 201912
  2. IMBRUVICA [Suspect]
     Active Substance: IBRUTINIB
     Indication: Mantle cell lymphoma
     Dosage: 560 MG
     Route: 048
     Dates: start: 20190809, end: 20201109
  3. LENALIDOMIDE [Suspect]
     Active Substance: LENALIDOMIDE
     Indication: Mantle cell lymphoma
     Dosage: UNK
     Route: 065
     Dates: start: 201912

REACTIONS (4)
  - Death [Fatal]
  - Mantle cell lymphoma [Unknown]
  - Disease progression [Unknown]
  - Intentional product use issue [Unknown]

NARRATIVE: CASE EVENT DATE: 20201001
